FAERS Safety Report 24631984 (Version 2)
Quarter: 2024Q4

REPORT INFORMATION
  Report Type: Spontaneous
  Country: US (occurrence: US)
  Receive Date: 20241118
  Receipt Date: 20241209
  Transmission Date: 20250115
  Serious: Yes (Other)
  Sender: BAYER HEALTHCARE PHARMACEUTICALS INC.
  Company Number: US-BAYER-2024A161498

PATIENT
  Sex: Female

DRUGS (2)
  1. KOVALTRY [Suspect]
     Active Substance: ANTIHEMOPHILIC FACTOR, HUMAN RECOMBINANT
     Indication: Factor VIII deficiency
     Dosage: 3000 IU, PRN
     Route: 042
     Dates: start: 202208
  2. KOVALTRY [Suspect]
     Active Substance: ANTIHEMOPHILIC FACTOR, HUMAN RECOMBINANT
     Indication: Hepatitis B
     Dosage: EVERY 8 HOURS FOR 3 DOSES
     Route: 042
     Dates: start: 202208

REACTIONS (5)
  - Neoplasm malignant [None]
  - Infection [None]
  - Poor venous access [None]
  - Malaise [None]
  - Product use in unapproved indication [None]
